FAERS Safety Report 21286411 (Version 1)
Quarter: 2022Q3

REPORT INFORMATION
  Report Type: Spontaneous
  Country: DE (occurrence: DE)
  Receive Date: 20220902
  Receipt Date: 20220902
  Transmission Date: 20221027
  Serious: Yes (Other)
  Sender: FDA-Public Use
  Company Number: DE-NOVARTISPH-NVSC2022DE197389

PATIENT
  Age: 63 Year
  Sex: Male

DRUGS (3)
  1. PACLITAXEL [Suspect]
     Active Substance: PACLITAXEL
     Indication: Non-small cell lung cancer
     Dosage: 175 MG/M2, TIW, (IN COMBINATION WITH TECENTRIQ AND CARBOPLATINE)
     Route: 065
     Dates: start: 20220405
  2. CARBOPLATIN [Suspect]
     Active Substance: CARBOPLATIN
     Indication: Non-small cell lung cancer
     Dosage: UNK UNK, TIW, (DOSE 5 AUC, IN COMBINATION WITH TECENTRIQ AND PACLITAXEL)
     Route: 065
     Dates: start: 20220405
  3. TECENTRIQ [Suspect]
     Active Substance: ATEZOLIZUMAB
     Indication: Non-small cell lung cancer
     Dosage: 1200 MG, TIW, (IN COMBINATION WITH PACLITAXEL AND CARBOPLATIN)
     Route: 065
     Dates: start: 20220405

REACTIONS (3)
  - Metastases to bone [Unknown]
  - Off label use [Unknown]
  - Off label use [Unknown]

NARRATIVE: CASE EVENT DATE: 20220405
